FAERS Safety Report 21322394 (Version 1)
Quarter: 2022Q3

REPORT INFORMATION
  Report Type: Spontaneous
  Country: US (occurrence: None)
  Receive Date: 20220910
  Receipt Date: 20220910
  Transmission Date: 20221026
  Serious: Yes (Hospitalization)
  Sender: FDA-Public Use
  Company Number: None

PATIENT
  Sex: Female
  Weight: 95.7 kg

DRUGS (3)
  1. TAXOL [Suspect]
     Active Substance: PACLITAXEL
  2. PERTUZUMAB [Concomitant]
     Active Substance: PERTUZUMAB
  3. HERCEPTIN [Concomitant]
     Active Substance: TRASTUZUMAB

REACTIONS (9)
  - Dyspnoea exertional [None]
  - Fatigue [None]
  - Muscle spasms [None]
  - Tachycardia [None]
  - Fibrin D dimer increased [None]
  - Brain natriuretic peptide increased [None]
  - Pulmonary oedema [None]
  - Atrial fibrillation [None]
  - Pulmonary hypertension [None]

NARRATIVE: CASE EVENT DATE: 20220720
